FAERS Safety Report 17099772 (Version 1)
Quarter: 2019Q4

REPORT INFORMATION
  Report Type: Spontaneous
  Country: US (occurrence: US)
  Receive Date: 20191202
  Receipt Date: 20191202
  Transmission Date: 20200122
  Serious: No
  Sender: FDA-Public Use
  Company Number: US-BAYER-2019-213527

PATIENT

DRUGS (2)
  1. ALEVE [Suspect]
     Active Substance: NAPROXEN SODIUM
     Dosage: UNK
     Route: 048
  2. ALEVE TENS DEVICE DIRECT THERAPY UNIT [Suspect]
     Active Substance: DEVICE
     Indication: PAIN
     Dosage: UNK

REACTIONS (2)
  - Device ineffective [None]
  - Abdominal discomfort [Unknown]
